FAERS Safety Report 15773183 (Version 6)
Quarter: 2020Q1

REPORT INFORMATION
  Report Type: Spontaneous
  Country: JP (occurrence: JP)
  Receive Date: 20181228
  Receipt Date: 20200317
  Transmission Date: 20200409
  Serious: Yes (Hospitalization, Other)
  Sender: FDA-Public Use
  Company Number: JP-LUNDBECK-DKLU2058757

PATIENT
  Age: 1 Year
  Sex: Male

DRUGS (38)
  1. SABRIL [Suspect]
     Active Substance: VIGABATRIN
     Route: 048
     Dates: start: 20190227, end: 20190305
  2. SABRIL [Suspect]
     Active Substance: VIGABATRIN
     Route: 048
     Dates: start: 20190327, end: 20190411
  3. DIGOSIN [Concomitant]
     Active Substance: DIGOXIN
     Indication: PRODUCT USED FOR UNKNOWN INDICATION
     Route: 065
  4. TAZOPIPE [Concomitant]
     Active Substance: PIPERACILLIN SODIUM\TAZOBACTAM SODIUM
     Indication: PRODUCT USED FOR UNKNOWN INDICATION
     Route: 065
     Dates: start: 20190115, end: 20190124
  5. VICCILLIN NO.1 [Concomitant]
     Indication: PRODUCT USED FOR UNKNOWN INDICATION
     Route: 065
     Dates: start: 20181228, end: 20190115
  6. SABRIL [Suspect]
     Active Substance: VIGABATRIN
     Route: 048
     Dates: start: 20181218, end: 20181224
  7. ZONISAMIDE. [Concomitant]
     Active Substance: ZONISAMIDE
     Indication: INFANTILE SPASMS
     Route: 065
     Dates: start: 20181229
  8. CLONAZEPAM. [Concomitant]
     Active Substance: CLONAZEPAM
     Route: 065
  9. GAMMA GLOBULIN [Concomitant]
     Active Substance: IMMUNE GLOBULIN NOS
     Indication: PRODUCT USED FOR UNKNOWN INDICATION
     Route: 065
     Dates: start: 20190120, end: 20190122
  10. ALINAMIN-F ODORLES [Concomitant]
     Indication: PRODUCT USED FOR UNKNOWN INDICATION
     Route: 065
     Dates: start: 20190225, end: 20190623
  11. SABRIL [Suspect]
     Active Substance: VIGABATRIN
     Route: 048
     Dates: start: 20190306, end: 20190312
  12. ERYTHROCIN NO. 2 [Concomitant]
     Indication: PRODUCT USED FOR UNKNOWN INDICATION
     Route: 065
     Dates: start: 20190116
  13. NEXIUM 1-2-3 [Concomitant]
     Active Substance: AMOXICILLIN\CLARITHROMYCIN\ESOMEPRAZOLE
     Indication: PRODUCT USED FOR UNKNOWN INDICATION
     Route: 065
     Dates: start: 20190227
  14. SABRIL [Suspect]
     Active Substance: VIGABATRIN
     Indication: INFANTILE SPASMS
     Route: 048
     Dates: start: 20181225, end: 20181227
  15. SABRIL [Suspect]
     Active Substance: VIGABATRIN
     Route: 048
     Dates: start: 20181203, end: 20181206
  16. SABRIL [Suspect]
     Active Substance: VIGABATRIN
     Route: 048
     Dates: start: 20190320, end: 20190326
  17. CLONAZEPAM. [Concomitant]
     Active Substance: CLONAZEPAM
     Indication: INFANTILE SPASMS
     Route: 065
     Dates: start: 20181130, end: 20181221
  18. PANVITAN BABY [Concomitant]
     Indication: PRODUCT USED FOR UNKNOWN INDICATION
     Route: 065
  19. MUCOSAL [Concomitant]
     Indication: PRODUCT USED FOR UNKNOWN INDICATION
     Route: 065
  20. SABRIL [Suspect]
     Active Substance: VIGABATRIN
     Route: 048
     Dates: start: 20190313, end: 20190319
  21. LEVETIRACETAM. [Concomitant]
     Active Substance: LEVETIRACETAM
     Indication: INFANTILE SPASMS
     Route: 065
     Dates: start: 20181018
  22. LAMOTRIGINE. [Concomitant]
     Active Substance: LAMOTRIGINE
     Indication: INFANTILE SPASMS
     Route: 065
     Dates: start: 20181218
  23. PRANLUKAST [Concomitant]
     Active Substance: PRANLUKAST
     Indication: PRODUCT USED FOR UNKNOWN INDICATION
     Route: 065
  24. BIOTIN [Concomitant]
     Active Substance: BIOTIN
     Indication: PRODUCT USED FOR UNKNOWN INDICATION
     Route: 065
     Dates: start: 20190225, end: 20190623
  25. SABRIL [Suspect]
     Active Substance: VIGABATRIN
     Route: 048
     Dates: start: 20181207, end: 20181210
  26. SABRIL [Suspect]
     Active Substance: VIGABATRIN
     Route: 048
     Dates: start: 20190107, end: 20190226
  27. SABRIL [Suspect]
     Active Substance: VIGABATRIN
     Route: 048
     Dates: start: 20181211, end: 20181217
  28. SABRIL [Suspect]
     Active Substance: VIGABATRIN
     Route: 048
     Dates: start: 20181228, end: 20190103
  29. SABRIL [Suspect]
     Active Substance: VIGABATRIN
     Route: 048
     Dates: start: 20190104, end: 20190106
  30. ACETYLSALICYLIC ACID [Concomitant]
     Active Substance: ASPIRIN
     Indication: PRODUCT USED FOR UNKNOWN INDICATION
     Route: 065
  31. CARBOCISTEINE [Concomitant]
     Active Substance: CARBOCYSTEINE
     Indication: PRODUCT USED FOR UNKNOWN INDICATION
     Route: 065
     Dates: start: 20181228
  32. BISOLVON [Concomitant]
     Active Substance: BROMHEXINE HYDROCHLORIDE
     Indication: PRODUCT USED FOR UNKNOWN INDICATION
     Route: 065
     Dates: start: 20190204
  33. SABRIL [Suspect]
     Active Substance: VIGABATRIN
     Route: 048
     Dates: start: 20181122, end: 20181202
  34. TETRACOSACTIDE ACETATE [Concomitant]
     Indication: INFANTILE SPASMS
     Route: 065
     Dates: start: 20190122, end: 20190312
  35. ASVERIN [Concomitant]
     Indication: PRODUCT USED FOR UNKNOWN INDICATION
     Route: 065
  36. HICEE B MATE [Concomitant]
     Indication: PRODUCT USED FOR UNKNOWN INDICATION
     Route: 065
     Dates: start: 20190225, end: 20190623
  37. JUVELA C [Concomitant]
     Indication: PRODUCT USED FOR UNKNOWN INDICATION
     Route: 065
     Dates: start: 20190225, end: 20190623
  38. NEUQUINON [Concomitant]
     Active Substance: UBIDECARENONE
     Indication: PRODUCT USED FOR UNKNOWN INDICATION
     Route: 065
     Dates: start: 20190225, end: 20190623

REACTIONS (5)
  - Drug ineffective [Unknown]
  - Restlessness [Recovering/Resolving]
  - Agitation [Recovering/Resolving]
  - Pneumonia [Recovered/Resolved]
  - Magnetic resonance imaging abnormal [Recovered/Resolved]

NARRATIVE: CASE EVENT DATE: 20181227
